FAERS Safety Report 8835038 (Version 2)
Quarter: 2012Q4

REPORT INFORMATION
  Report Type: Report from Study
  Country: CA (occurrence: CA)
  Receive Date: 20121011
  Receipt Date: 20121023
  Transmission Date: 20130627
  Serious: Yes (Hospitalization, Other)
  Sender: FDA-Public Use
  Company Number: CA-JNJFOC-20121001967

PATIENT
  Sex: Female
  Weight: 82 kg

DRUGS (9)
  1. REMICADE [Suspect]
     Indication: CROHN^S DISEASE
     Route: 042
     Dates: start: 20120803
  2. REMICADE [Suspect]
     Indication: CROHN^S DISEASE
     Route: 042
     Dates: start: 201108
  3. HYDROMORPH [Concomitant]
     Route: 065
  4. AMITRIPTYLINE [Concomitant]
     Route: 065
  5. RABEPRAZOLE [Concomitant]
     Route: 065
  6. IRON [Concomitant]
     Route: 065
  7. CLONAZEPAM [Concomitant]
     Route: 065
  8. ONDANSETRON [Concomitant]
     Route: 065
  9. DOCUSATE [Concomitant]
     Route: 065

REACTIONS (5)
  - Cardiomegaly [Recovering/Resolving]
  - Respiratory disorder [Recovering/Resolving]
  - Fatigue [Recovering/Resolving]
  - Confusional state [Recovering/Resolving]
  - Dyspnoea exertional [Not Recovered/Not Resolved]
